FAERS Safety Report 7992483-5 (Version None)
Quarter: 2011Q4

REPORT INFORMATION
  Report Type: 
  Country: None (occurrence: None)
  Receive Date: 20111219
  Receipt Date: 20111213
  Transmission Date: 20120403
  Serious: Yes (Other)
  Sender: FDA-Public Use
  Company Number: PHHY2011DE109733

PATIENT
  Age: 76 Year
  Sex: Male

DRUGS (1)
  1. ZOLEDRONOC ACID [Suspect]
     Dosage: 5 MG
     Route: 042
     Dates: start: 20111205

REACTIONS (6)
  - NAUSEA [None]
  - CHILLS [None]
  - MYALGIA [None]
  - PAIN [None]
  - PYREXIA [None]
  - ARTHRALGIA [None]
